FAERS Safety Report 14391997 (Version 1)
Quarter: 2018Q1

REPORT INFORMATION
  Report Type: Spontaneous
  Country: US (occurrence: US)
  Receive Date: 20180116
  Receipt Date: 20180116
  Transmission Date: 20180509
  Serious: No
  Sender: FDA-Public Use
  Company Number: US-GLAXOSMITHKLINE-US2018005174

PATIENT
  Age: 64 Year
  Sex: Female

DRUGS (4)
  1. WARFARIN [Concomitant]
     Active Substance: WARFARIN
  2. GLIPIZIDE. [Concomitant]
     Active Substance: GLIPIZIDE
  3. TANZEUM [Suspect]
     Active Substance: ALBIGLUTIDE
     Indication: TYPE 2 DIABETES MELLITUS
     Dosage: 50 MG, CYC
     Route: 042
     Dates: start: 201705
  4. PLAVIX [Concomitant]
     Active Substance: CLOPIDOGREL BISULFATE

REACTIONS (2)
  - Pruritus [Not Recovered/Not Resolved]
  - Rash [Not Recovered/Not Resolved]

NARRATIVE: CASE EVENT DATE: 20171231
